FAERS Safety Report 22327887 (Version 1)
Quarter: 2023Q2

REPORT INFORMATION
  Report Type: Spontaneous
  Country: US (occurrence: US)
  Receive Date: 20230516
  Receipt Date: 20230516
  Transmission Date: 20230722
  Serious: No
  Sender: FDA-Public Use
  Company Number: US-RADIUS HEALTH INC.-2022US006194

PATIENT
  Sex: Female

DRUGS (3)
  1. TYMLOS [Suspect]
     Active Substance: ABALOPARATIDE
     Indication: Osteoporosis
     Dosage: 80 MICROGRAM, QD
     Route: 058
     Dates: start: 20221201
  2. TYMLOS [Suspect]
     Active Substance: ABALOPARATIDE
     Indication: Traumatic fracture
     Dosage: 80 MCG, DAILY
     Route: 058
     Dates: start: 20221214
  3. TYMLOS [Suspect]
     Active Substance: ABALOPARATIDE
     Indication: Osteoporosis postmenopausal

REACTIONS (8)
  - Hot flush [Unknown]
  - Temperature intolerance [Unknown]
  - Acne [Unknown]
  - Palpitations [Unknown]
  - Fatigue [Unknown]
  - Heart rate increased [Unknown]
  - Asthenia [Unknown]
  - Rash [Unknown]
